FAERS Safety Report 25802656 (Version 1)
Quarter: 2025Q3

REPORT INFORMATION
  Report Type: Spontaneous
  Country: US (occurrence: None)
  Receive Date: 20250914
  Receipt Date: 20250914
  Transmission Date: 20251021
  Serious: Yes (Hospitalization)
  Sender: FDA-CTU
  Company Number: None

PATIENT
  Age: 50 Year
  Sex: Female

DRUGS (1)
  1. NIVESTYM [Suspect]
     Active Substance: FILGRASTIM-AAFI
     Dosage: INJECT 0.68 ML UNDER THE SKIN DAILY
     Route: 058

REACTIONS (5)
  - Fluid retention [None]
  - Splenomegaly [None]
  - Liver transplant [None]
  - Pain [None]
  - Bone disorder [None]

NARRATIVE: CASE EVENT DATE: 20250621
